FAERS Safety Report 7298250-2 (Version None)
Quarter: 2011Q1

REPORT INFORMATION
  Report Type: 
  Country: None (occurrence: None)
  Receive Date: 20110214
  Receipt Date: 20110214
  Transmission Date: 20110831
  Serious: No
  Sender: FDA-Public Use
  Company Number: None

PATIENT
  Age: 81 Year
  Sex: Female

DRUGS (12)
  1. CRANBERRY EXTRACT [Concomitant]
  2. ALENDRONATE [Concomitant]
  3. CALCIUM [Concomitant]
  4. FUROSEMIDE [Concomitant]
  5. POTASSIUM CHLORIDE [Concomitant]
  6. CYAMOCOBALAMIN [Concomitant]
  7. ASENAPINE [Concomitant]
  8. AMLODIPINE [Concomitant]
  9. CITALOPRAM [Concomitant]
  10. SAPHRIS [Suspect]
     Indication: SCHIZOPHRENIA
     Dosage: 5MG BID SL
     Route: 060
     Dates: start: 20100917, end: 20110121
  11. LEVOTHYROXINE [Concomitant]
  12. OMEPRAZOLE [Concomitant]

REACTIONS (3)
  - HYPERNATRAEMIA [None]
  - HYPOPHAGIA [None]
  - DEPRESSED LEVEL OF CONSCIOUSNESS [None]
